FAERS Safety Report 13580937 (Version 3)
Quarter: 2017Q4

REPORT INFORMATION
  Report Type: Spontaneous
  Country: DE (occurrence: DE)
  Receive Date: 20170525
  Receipt Date: 20171003
  Transmission Date: 20180320
  Serious: Yes (Hospitalization, Other)
  Sender: FDA-Public Use
  Company Number: DE-SA-2017SA090770

PATIENT
  Sex: Female
  Weight: 70 kg

DRUGS (8)
  1. LEMTRADA [Suspect]
     Active Substance: ALEMTUZUMAB
     Indication: RELAPSING-REMITTING MULTIPLE SCLEROSIS
     Route: 041
     Dates: start: 20140512, end: 20140516
  2. NEUREXAN [Concomitant]
     Active Substance: HOMEOPATHICS
     Indication: RESTLESSNESS
     Route: 048
  3. VIGANTOLETTEN [Concomitant]
     Active Substance: CHOLECALCIFEROL
     Indication: VITAMIN D DEFICIENCY
     Dosage: 1 X 1000 IU
     Route: 048
     Dates: start: 2016
  4. BACLOFEN. [Suspect]
     Active Substance: BACLOFEN
     Route: 065
  5. FAMPYRA [Concomitant]
     Active Substance: DALFAMPRIDINE
     Indication: MULTIPLE SCLEROSIS
     Dosage: 2 X 10 MG
     Route: 048
     Dates: start: 201702
  6. LEMTRADA [Suspect]
     Active Substance: ALEMTUZUMAB
     Indication: RELAPSING-REMITTING MULTIPLE SCLEROSIS
     Route: 041
     Dates: start: 20150519, end: 20150521
  7. LOPEDIUM [Concomitant]
     Active Substance: LOPERAMIDE
     Indication: DIARRHOEA
     Route: 048
  8. VIGANTOLETTEN [Concomitant]
     Active Substance: CHOLECALCIFEROL
     Indication: MULTIPLE SCLEROSIS
     Dosage: 1 X 1000 IU
     Route: 048
     Dates: start: 2016

REACTIONS (26)
  - Platelet count decreased [Recovered/Resolved]
  - Hyperthyroidism [Recovered/Resolved]
  - Lymphocyte count decreased [Unknown]
  - Petechiae [Recovered/Resolved]
  - Thyroiditis subacute [Recovered/Resolved]
  - Fatigue [Unknown]
  - Multiple sclerosis relapse [Unknown]
  - Epistaxis [Recovered/Resolved]
  - White blood cells urine positive [Unknown]
  - C-reactive protein increased [Unknown]
  - Diarrhoea [Unknown]
  - Oropharyngeal pain [Unknown]
  - Blood fibrinogen increased [Unknown]
  - Neutrophil percentage increased [Unknown]
  - Immune thrombocytopenic purpura [Recovered/Resolved]
  - Gingival bleeding [Recovered/Resolved]
  - Low density lipoprotein increased [Unknown]
  - Urinary sediment present [Unknown]
  - Hypothyroidism [Recovered/Resolved]
  - Autoimmune thyroiditis [Unknown]
  - Muscular weakness [Unknown]
  - Liver function test increased [Unknown]
  - Red blood cells urine positive [Unknown]
  - Sinus tachycardia [Unknown]
  - Hyperhidrosis [Unknown]
  - Blood cholesterol increased [Unknown]

NARRATIVE: CASE EVENT DATE: 20151202
